FAERS Safety Report 8780855 (Version 1)
Quarter: 2012Q4

REPORT INFORMATION
  Report Type: 
  Country: PL (occurrence: PL)
  Receive Date: 20120913
  Receipt Date: 20120913
  Transmission Date: 20130627
  Serious: Yes (Other)
  Sender: FDA-Public Use
  Company Number: PL-009507513-1209POL003900

PATIENT

DRUGS (2)
  1. SINGULAIR [Suspect]
     Indication: ASTHMA
     Dosage: 4 mg, qd
     Route: 048
     Dates: start: 2011
  2. SINGULAR [Suspect]
     Dosage: 4 mg, qd
     Route: 048
     Dates: start: 201209

REACTIONS (4)
  - None [Not Recovered/Not Resolved]
  - None [Not Recovered/Not Resolved]
  - Sleep disorder [Recovered/Resolved]
  - Abnormal behaviour [Recovered/Resolved]
